FAERS Safety Report 25828410 (Version 2)
Quarter: 2025Q4

REPORT INFORMATION
  Report Type: Spontaneous
  Country: JP (occurrence: JP)
  Receive Date: 20250921
  Receipt Date: 20251014
  Transmission Date: 20260118
  Serious: Yes (Death)
  Sender: NOVARTIS
  Company Number: JP-002147023-NVSJ2025JP009508

PATIENT
  Age: 8 Decade
  Sex: Female

DRUGS (2)
  1. TABRECTA [Suspect]
     Active Substance: CAPMATINIB
     Indication: Lung neoplasm malignant
     Dosage: 400 MG, BID
     Route: 048
     Dates: start: 202410, end: 20250120
  2. TABRECTA [Suspect]
     Active Substance: CAPMATINIB
     Indication: MET exon 14 skipping mutation positive

REACTIONS (6)
  - Lung neoplasm malignant [Fatal]
  - Malignant neoplasm progression [Fatal]
  - Oedema [Recovering/Resolving]
  - Erythema [Recovering/Resolving]
  - Blood albumin decreased [Recovering/Resolving]
  - Pleural effusion [Recovering/Resolving]

NARRATIVE: CASE EVENT DATE: 20241101
